FAERS Safety Report 9325901 (Version 2)
Quarter: 2013Q2

REPORT INFORMATION
  Report Type: Spontaneous
  Country: US (occurrence: US)
  Receive Date: 20130604
  Receipt Date: 20130612
  Transmission Date: 20140414
  Serious: Yes (Other)
  Sender: FDA-Public Use
  Company Number: US-COVIDIEN/TYCO HEALTHCARE/MALLINCKRODT-T201302439

PATIENT
  Age: 46 Year
  Sex: Male
  Weight: 63.49 kg

DRUGS (4)
  1. HYDROCODONE/ACETAMINOPHEN [Suspect]
     Indication: PAIN
     Dosage: Q 4 HRS PRN
     Route: 048
     Dates: start: 20130523
  2. HYDROCODONE/ACETAMINOPHEN [Suspect]
     Indication: NECK PAIN
  3. PRILOSEC                           /00661201/ [Concomitant]
     Dosage: UNK
     Route: 048
  4. VICODIN [Concomitant]
     Indication: PAIN

REACTIONS (13)
  - Hallucination [Recovered/Resolved]
  - Dysuria [Recovering/Resolving]
  - Feeling abnormal [Not Recovered/Not Resolved]
  - Myalgia [Not Recovered/Not Resolved]
  - Bone pain [Not Recovered/Not Resolved]
  - Insomnia [Unknown]
  - Drug effect increased [Unknown]
  - Product taste abnormal [Not Recovered/Not Resolved]
  - Anxiety [Not Recovered/Not Resolved]
  - Nausea [Not Recovered/Not Resolved]
  - Sedation [Not Recovered/Not Resolved]
  - Drug ineffective [Not Recovered/Not Resolved]
  - Dizziness [Not Recovered/Not Resolved]
